FAERS Safety Report 10252830 (Version 3)
Quarter: 2014Q3

REPORT INFORMATION
  Report Type: Spontaneous
  Country: US (occurrence: US)
  Receive Date: 20140623
  Receipt Date: 20140926
  Transmission Date: 20150326
  Serious: Yes (Other)
  Sender: FDA-Public Use
  Company Number: US-PFIZER INC-2014168107

PATIENT
  Age: 65 Year
  Sex: Female

DRUGS (5)
  1. DILANTIN [Suspect]
     Active Substance: PHENYTOIN
     Dosage: 100 MG, 4X/DAY
     Route: 048
  2. DILANTIN [Suspect]
     Active Substance: PHENYTOIN
     Dosage: 100 MG, 3X/DAY
     Route: 048
     Dates: start: 1976
  3. DILANTIN [Suspect]
     Active Substance: PHENYTOIN
     Indication: EPILEPSY
     Dosage: UNK
     Route: 048
  4. MYSOLINE [Suspect]
     Active Substance: PRIMIDONE
     Dosage: UNK
  5. FYCOMPA [Suspect]
     Active Substance: PERAMPANEL
     Dosage: UNK

REACTIONS (7)
  - Activities of daily living impaired [Unknown]
  - Anticonvulsant drug level below therapeutic [Unknown]
  - Dysstasia [Unknown]
  - Feeling abnormal [Unknown]
  - Drug intolerance [Unknown]
  - Dizziness [Unknown]
  - Convulsion [Unknown]

NARRATIVE: CASE EVENT DATE: 20140503
